FAERS Safety Report 11253711 (Version 2)
Quarter: 2015Q3

REPORT INFORMATION
  Report Type: Spontaneous
  Country: CA (occurrence: CA)
  Receive Date: 20150709
  Receipt Date: 20150730
  Transmission Date: 20151125
  Serious: Yes (Other)
  Sender: FDA-Public Use
  Company Number: CA-ENDO PHARMACEUTICALS INC.-2015-001688

PATIENT
  Sex: Female

DRUGS (1)
  1. XIAFLEX [Suspect]
     Active Substance: COLLAGENASE CLOSTRIDIUM HISTOLYTICUM
     Indication: PRODUCT USED FOR UNKNOWN INDICATION
     Route: 026

REACTIONS (2)
  - Wrong technique in product usage process [Unknown]
  - Complex regional pain syndrome [Unknown]
